FAERS Safety Report 8053366-8 (Version None)
Quarter: 2012Q1

REPORT INFORMATION
  Report Type: 
  Country: None (occurrence: None)
  Receive Date: 20120118
  Receipt Date: 20120113
  Transmission Date: 20120608
  Serious: Yes (Other)
  Sender: FDA-Public Use
  Company Number: US-TEVA-314472USA

PATIENT
  Sex: Female

DRUGS (1)
  1. CLARAVIS [Suspect]
     Dosage: 40 MILLIGRAM;
     Route: 048
     Dates: start: 20111001, end: 20111216

REACTIONS (3)
  - TREATMENT NONCOMPLIANCE [None]
  - MATERNAL EXPOSURE DURING PREGNANCY [None]
  - UNINTENDED PREGNANCY [None]
